FAERS Safety Report 4434775-2 (Version None)
Quarter: 2004Q3

REPORT INFORMATION
  Report Type: 
  Country: None (occurrence: None)
  Receive Date: 20040827
  Receipt Date: 20040818
  Transmission Date: 20050211
  Serious: Yes (Hospitalization)
  Sender: FDA-Public Use
  Company Number: FR-BRISTOL-MYERS SQUIBB COMPANY-12677340

PATIENT
  Age: 66 Year
  Sex: Male

DRUGS (6)
  1. GLUCOPHAGE [Suspect]
     Route: 048
     Dates: start: 20040515, end: 20040723
  2. TAHOR [Concomitant]
  3. DIAMICRON [Concomitant]
     Route: 048
  4. PREVISCAN [Concomitant]
     Route: 048
  5. ZESTRIL [Concomitant]
     Route: 048
  6. AMLOR [Concomitant]
     Route: 048

REACTIONS (1)
  - HAEMOLYTIC ANAEMIA [None]
